FAERS Safety Report 8564968-4 (Version None)
Quarter: 2012Q3

REPORT INFORMATION
  Report Type: 
  Country: None (occurrence: None)
  Receive Date: 20120803
  Receipt Date: 20120731
  Transmission Date: 20120928
  Serious: Yes (Hospitalization)
  Sender: FDA-Public Use
  Company Number: DE-ROCHE-1088487

PATIENT
  Sex: Female
  Weight: 92.5 kg

DRUGS (3)
  1. XELODA [Suspect]
     Indication: BREAST CANCER
     Route: 048
     Dates: start: 20111222, end: 20120621
  2. XGEVA [Concomitant]
     Indication: BREAST CANCER
     Route: 058
     Dates: start: 20111222, end: 20120621
  3. AVASTIN [Suspect]
     Indication: BREAST CANCER
     Route: 042
     Dates: start: 20111222, end: 20120621

REACTIONS (3)
  - GENERAL PHYSICAL HEALTH DETERIORATION [None]
  - VOMITING [None]
  - NAUSEA [None]
